FAERS Safety Report 14031010 (Version 1)
Quarter: 2017Q4

REPORT INFORMATION
  Report Type: Spontaneous
  Country: US (occurrence: US)
  Receive Date: 20171002
  Receipt Date: 20171002
  Transmission Date: 20180321
  Serious: Yes (Hospitalization)
  Sender: FDA-Public Use
  Company Number: US-AMGEN-USASP2017145852

PATIENT
  Age: 67 Year
  Sex: Female

DRUGS (1)
  1. PROLIA [Suspect]
     Active Substance: DENOSUMAB
     Indication: OSTEOPOROSIS POSTMENOPAUSAL
     Dosage: 60 MG, Q6MO
     Route: 065
     Dates: start: 20170227

REACTIONS (8)
  - Muscle tightness [Unknown]
  - Supraventricular tachycardia [Not Recovered/Not Resolved]
  - Cardiac disorder [Unknown]
  - Gastric disorder [Unknown]
  - Constipation [Unknown]
  - Insomnia [Unknown]
  - Abdominal pain upper [Not Recovered/Not Resolved]
  - Eating disorder [Unknown]

NARRATIVE: CASE EVENT DATE: 2017
